FAERS Safety Report 6569286-1 (Version None)
Quarter: 2010Q1

REPORT INFORMATION
  Report Type: 
  Country: None (occurrence: None)
  Receive Date: 20100201
  Receipt Date: 20100201
  Transmission Date: 20100710
  Serious: Yes (Other)
  Sender: FDA-Public Use
  Company Number: None

PATIENT
  Age: 52 Year
  Sex: Female
  Weight: 63.5036 kg

DRUGS (3)
  1. GABAPENTIN [Suspect]
     Indication: HOT FLUSH
     Dosage: 200 MG ONCE DAILY
     Dates: start: 20090910
  2. GABAPENTIN [Suspect]
     Indication: INSOMNIA
     Dosage: 200 MG ONCE DAILY
     Dates: start: 20090910
  3. GABAPENTIN [Suspect]
     Indication: NEURALGIA
     Dosage: 200 MG ONCE DAILY
     Dates: start: 20090910

REACTIONS (7)
  - BACK PAIN [None]
  - CHEST PAIN [None]
  - DEPRESSION [None]
  - HEART RATE INCREASED [None]
  - INSOMNIA [None]
  - NAUSEA [None]
  - TREMOR [None]
